FAERS Safety Report 5337058-1 (Version None)
Quarter: 2007Q2

REPORT INFORMATION
  Report Type: 
  Country: None (occurrence: None)
  Receive Date: 20070529
  Receipt Date: 20070516
  Transmission Date: 20071010
  Serious: Yes (Hospitalization, Other)
  Sender: FDA-Public Use
  Company Number: GB-ELI_LILLY_AND_COMPANY-GB200705004076

PATIENT
  Age: 9 Year
  Sex: Male
  Weight: 32.2 kg

DRUGS (1)
  1. STRATTERA [Suspect]
     Dosage: 40 MG, UNK
     Route: 048
     Dates: start: 20060520, end: 20070425

REACTIONS (4)
  - DISTURBANCE IN ATTENTION [None]
  - FEELING ABNORMAL [None]
  - PALLOR [None]
  - VISUAL DISTURBANCE [None]
